FAERS Safety Report 10387910 (Version 1)
Quarter: 2014Q1

REPORT INFORMATION
  Report Type: Spontaneous
  Country: US (occurrence: None)
  Receive Date: 20140306
  Receipt Date: 20140306
  Transmission Date: 20141002
  Serious: Yes (Hospitalization)
  Sender: FDA-Public Use
  Company Number: 163-21880-13110179

PATIENT
  Age: 73 Year
  Sex: Male

DRUGS (13)
  1. REVLIMID (LENALIDOMIDE) (15 MILLIGRAM, CAPSULES) [Suspect]
     Indication: PLASMA CELL MYELOMA
     Route: 048
     Dates: start: 20101018, end: 20131003
  2. ENALAPRIL (ENALAPRIL) [Concomitant]
  3. COMPLETE MULTIVITAMINS (MULTIVITAMINS) (TABLETS) [Concomitant]
  4. L-ARGININE (ARGININE HYDROCHLORIDE) [Concomitant]
  5. BETA CAROTENE (BETACAROTENE) [Concomitant]
  6. HUMALOG (INSULIN LISPRO) [Concomitant]
  7. FLUTICASONE PROPIONATE (FLUTICASONE PROPIONATE) (SPRAY (NOT INHALATION)) [Concomitant]
  8. DEXAMETHASONE (DEXAMETHASONE) [Concomitant]
  9. LANTUS (INSULIN GLARGINE) [Concomitant]
  10. ACETAMINOPHEN W/CODEINE (GALENIC/PARACETAMOL/CODEINE/) (TABLETS) [Concomitant]
  11. CRESTOR (ROSUVASTATIN) (TABLETS) [Concomitant]
  12. METFORMIN HCL (METFORMIN HYDROCHLORIDE) [Concomitant]
  13. VERAPAMIL (VERAPAMIL) (TABLETS) [Concomitant]

REACTIONS (1)
  - Pneumonia pneumococcal [None]
